FAERS Safety Report 9298374 (Version 2)
Quarter: 2013Q3

REPORT INFORMATION
  Report Type: Spontaneous
  Country: CA (occurrence: CA)
  Receive Date: 20130520
  Receipt Date: 20130709
  Transmission Date: 20140515
  Serious: Yes (Death, Hospitalization, Other)
  Sender: FDA-Public Use
  Company Number: CA-AMGEN-CANSP2013034400

PATIENT
  Age: 83 Year
  Sex: Male
  Weight: 72.73 kg

DRUGS (1)
  1. PROLIA [Suspect]
     Indication: OSTEOPOROSIS
     Dosage: 60 MG, UNK
     Dates: start: 20111212

REACTIONS (5)
  - Death [Fatal]
  - Cardiac disorder [Unknown]
  - Pneumonia [Unknown]
  - Pulmonary oedema [Unknown]
  - Liver disorder [Unknown]
